FAERS Safety Report 8814001 (Version 1)
Quarter: 2012Q4

REPORT INFORMATION
  Report Type: 
  Country: US (occurrence: US)
  Receive Date: 20120928
  Receipt Date: 20120928
  Transmission Date: 20130627
  Serious: No
  Sender: FDA-Public Use
  Company Number: US-PFIZER INC-2012238677

PATIENT

DRUGS (1)
  1. JUNIOR STRENGTH ADVIL [Suspect]
     Dosage: 100 mg, single
     Route: 048
     Dates: start: 20120925, end: 20120926

REACTIONS (2)
  - Throat irritation [Unknown]
  - Oral discomfort [Unknown]
